FAERS Safety Report 22651785 (Version 1)
Quarter: 2023Q2

REPORT INFORMATION
  Report Type: Spontaneous
  Country: US (occurrence: US)
  Receive Date: 20230628
  Receipt Date: 20230628
  Transmission Date: 20230721
  Serious: No
  Sender: FDA-Public Use
  Company Number: US-CTI BIOPHARMA-2023US03596

PATIENT

DRUGS (7)
  1. VONJO [Suspect]
     Active Substance: PACRITINIB
     Indication: Myelofibrosis
     Dosage: 100 MG, BID
     Route: 048
     Dates: start: 20221203
  2. EZETIMIBE [Concomitant]
     Active Substance: EZETIMIBE
  3. FUROSEMIDE [Concomitant]
     Active Substance: FUROSEMIDE
  4. JADENU [Concomitant]
     Active Substance: DEFERASIROX
  5. LEVOTHYROXINE [Concomitant]
     Active Substance: LEVOTHYROXINE
  6. NITROGLYCERIN PATCHES (II) [Concomitant]
  7. RANOLAZINE [Concomitant]
     Active Substance: RANOLAZINE

REACTIONS (2)
  - Skin papilloma [Unknown]
  - Transfusion [Unknown]
